FAERS Safety Report 10538064 (Version 2)
Quarter: 2015Q1

REPORT INFORMATION
  Report Type: Spontaneous
  Country: IT (occurrence: IT)
  Receive Date: 20141023
  Receipt Date: 20150203
  Transmission Date: 20150720
  Serious: Yes (Hospitalization)
  Sender: FDA-Public Use
  Company Number: IT-PFIZER INC-2014291424

PATIENT
  Age: 40 Year
  Sex: Female

DRUGS (2)
  1. XANAX [Suspect]
     Active Substance: ALPRAZOLAM
     Dosage: 20 DF, TOTAL
     Route: 048
     Dates: start: 20141016, end: 20141016
  2. MINIAS [Suspect]
     Active Substance: LORMETAZEPAM
     Dosage: 20 ML, TOTAL
     Route: 048
     Dates: start: 20141016, end: 20141016

REACTIONS (4)
  - Dysarthria [Recovering/Resolving]
  - Bradykinesia [Recovering/Resolving]
  - Bradyphrenia [Recovering/Resolving]
  - Drug abuse [Recovering/Resolving]

NARRATIVE: CASE EVENT DATE: 20141016
